FAERS Safety Report 5958195-4 (Version None)
Quarter: 2008Q4

REPORT INFORMATION
  Report Type: 
  Country: None (occurrence: None)
  Receive Date: 20081117
  Receipt Date: 20081117
  Transmission Date: 20090506
  Serious: No
  Sender: FDA-Public Use
  Company Number: None

PATIENT
  Age: 27 Year
  Sex: Male
  Weight: 102.0593 kg

DRUGS (1)
  1. LEVAQUIN [Suspect]
     Indication: PROSTATE INFECTION
     Dosage: 100MG 1 TIME DAILY PO
     Route: 048
     Dates: start: 20080801, end: 20080808

REACTIONS (10)
  - ACTIVITIES OF DAILY LIVING IMPAIRED [None]
  - ARTHRALGIA [None]
  - ARTHROPATHY [None]
  - BACK PAIN [None]
  - DYSSTASIA [None]
  - IMPAIRED WORK ABILITY [None]
  - MOBILITY DECREASED [None]
  - MYALGIA [None]
  - PAIN IN EXTREMITY [None]
  - TENDON DISORDER [None]
